FAERS Safety Report 7361534-3 (Version None)
Quarter: 2011Q1

REPORT INFORMATION
  Report Type: 
  Country: None (occurrence: None)
  Receive Date: 20110318
  Receipt Date: 20110314
  Transmission Date: 20110831
  Serious: Yes (Life-Threatening, Hospitalization)
  Sender: FDA-Public Use
  Company Number: PHHY2011FR20823

PATIENT
  Age: 71 Year
  Sex: Male

DRUGS (14)
  1. TRIATEC [Interacting]
     Dosage: 5 MG, QD
     Route: 048
     Dates: end: 20100514
  2. METFORMINE [Concomitant]
  3. CONTRAMAL [Concomitant]
     Dosage: UNK
     Dates: start: 20100501
  4. PROCORALAN [Concomitant]
  5. VOLTAREN [Suspect]
     Dosage: 100 MG, BID
     Route: 048
     Dates: start: 20100511, end: 20100514
  6. ACUPAN [Concomitant]
     Dosage: UNK
     Dates: start: 20100501
  7. KARDEGIC [Concomitant]
  8. DOVONEX [Concomitant]
  9. JANUVIA [Concomitant]
  10. THIOCOLCHICOSIDE [Concomitant]
  11. SIMVASTATIN [Concomitant]
  12. FUROSEMIDE [Interacting]
     Dosage: 20 MG, BID
     Route: 048
     Dates: end: 20100514
  13. STABLON [Concomitant]
  14. LANSOPRAZOLE [Concomitant]

REACTIONS (10)
  - BLOOD CREATININE INCREASED [None]
  - PH BODY FLUID ABNORMAL [None]
  - RENAL FAILURE ACUTE [None]
  - CREATININE RENAL CLEARANCE DECREASED [None]
  - NAUSEA [None]
  - HYPERKALAEMIA [None]
  - LACTIC ACIDOSIS [None]
  - VOMITING [None]
  - ANURIA [None]
  - BLOOD LACTIC ACID INCREASED [None]
